FAERS Safety Report 8162937-X (Version None)
Quarter: 2012Q1

REPORT INFORMATION
  Report Type: 
  Country: None (occurrence: None)
  Receive Date: 20120103
  Receipt Date: 20111025
  Transmission Date: 20120608
  Serious: No
  Sender: FDA-Public Use
  Company Number: AE-2011-001355

PATIENT
  Age: 54 Year
  Sex: Female
  Weight: 78.4723 kg

DRUGS (12)
  1. VENTOLIN [Concomitant]
  2. INCIVEK [Suspect]
     Dosage: 2250 MG (750 MG, 1 IN 8 HR), ORAL
     Route: 048
     Dates: start: 20110820
  3. PEGASYS [Concomitant]
  4. COPEGUS [Concomitant]
  5. HYDROCHLOROTHIAZIDE [Concomitant]
  6. SPIRIVA [Concomitant]
  7. NAPROXEN [Concomitant]
  8. COZAAR [Concomitant]
  9. HYDROCORTONE [Concomitant]
  10. TREXIMET (SUMATRIPTAN) [Concomitant]
  11. EFFEXOR [Concomitant]
  12. FLEXERIL [Concomitant]

REACTIONS (7)
  - TREMOR [None]
  - DYSPNOEA [None]
  - FATIGUE [None]
  - ANAEMIA [None]
  - DIZZINESS [None]
  - PRURITUS [None]
  - RASH [None]
